FAERS Safety Report 20183797 (Version 2)
Quarter: 2022Q1

REPORT INFORMATION
  Report Type: Spontaneous
  Country: FR (occurrence: FR)
  Receive Date: 20211214
  Receipt Date: 20220216
  Transmission Date: 20220423
  Serious: Yes (Other)
  Sender: FDA-Public Use
  Company Number: FR-NOVARTISPH-NVSC2021FR281931

PATIENT

DRUGS (13)
  1. VANCOMYCIN [Suspect]
     Active Substance: VANCOMYCIN
     Indication: Foetal exposure during pregnancy
     Dosage: UNK (MATERNAL DOSE: 500 MG)
     Route: 064
  2. CEFAZOLIN [Suspect]
     Active Substance: CEFAZOLIN
     Indication: Foetal exposure during pregnancy
     Dosage: UNK (MATERNAL DOSE: 2 G INTRAVENOUSLY)
     Route: 064
  3. INDOMETHACIN [Suspect]
     Active Substance: INDOMETHACIN
     Indication: Foetal exposure during pregnancy
     Dosage: UNK (MATERNAL DOSE: 50 MG PER RECTUM)
     Route: 064
  4. INDOMETHACIN [Suspect]
     Active Substance: INDOMETHACIN
     Dosage: UNK (MATERNAL DOSE: 50 MG, Q6H (FOR IST 24 H)
     Route: 064
  5. INDOMETHACIN [Suspect]
     Active Substance: INDOMETHACIN
     Dosage: UNK (MATERNAL DOSE: 25 MG, Q6H (ON 2ND DAY)
     Route: 064
  6. ATOSIBAN [Suspect]
     Active Substance: ATOSIBAN
     Indication: Foetal exposure during pregnancy
     Dosage: UNK (MATERNAL DOSE: 18 MG/H DURING FIRST 3 HOURS, INTRAVENOUS, IV PERFUSION OF 6 MG/H DURING 43 HRS)
     Route: 064
  7. ATOSIBAN [Suspect]
     Active Substance: ATOSIBAN
     Dosage: UNK (MATERNAL DOSE: 6 MG, QH (DURING 43 HRS)
     Route: 064
  8. PROPOFOL [Suspect]
     Active Substance: PROPOFOL
     Indication: Foetal exposure during pregnancy
     Dosage: UNK (MATERNAL DOSE: UNK)
     Route: 064
  9. SUCCINYLCHOLINE [Suspect]
     Active Substance: SUCCINYLCHOLINE
     Indication: Foetal exposure during pregnancy
     Dosage: UNK (MATERNAL DOSE: UNK)
     Route: 064
  10. SEVOFLURANE [Suspect]
     Active Substance: SEVOFLURANE
     Indication: Foetal exposure during pregnancy
     Dosage: UNK (MATERNAL DOSE: 3 PERCENT)
     Route: 064
  11. ATRACURIUM [Suspect]
     Active Substance: ATRACURIUM
     Indication: Foetal exposure during pregnancy
     Dosage: UNK (MATERNAL DOSE: 0.5 MG/KG)
     Route: 064
  12. NIFEDIPINE [Suspect]
     Active Substance: NIFEDIPINE
     Indication: Foetal exposure during pregnancy
     Dosage: UNK (MATERNAL DOSE: UNK)
     Route: 064
  13. SALINE [Suspect]
     Active Substance: SODIUM CHLORIDE
     Indication: Foetal exposure during pregnancy
     Dosage: UNK (MATERNAL DOSE: WARMED STERILE SALINE)
     Route: 064

REACTIONS (2)
  - Premature baby [Unknown]
  - Foetal exposure during pregnancy [Unknown]
